FAERS Safety Report 4339459-7 (Version None)
Quarter: 2004Q2

REPORT INFORMATION
  Report Type: 
  Country: None (occurrence: None)
  Receive Date: 20040415
  Receipt Date: 20040408
  Transmission Date: 20050107
  Serious: Yes (Disabling)
  Sender: FDA-Public Use
  Company Number: GB-BRISTOL-MYERS SQUIBB COMPANY-12554788

PATIENT
  Age: 63 Year
  Sex: Female
  Weight: 62 kg

DRUGS (5)
  1. IRBESARTAN TABS 150 MG [Suspect]
     Indication: HYPERTENSION
     Route: 048
     Dates: start: 20021001, end: 20030101
  2. EPROSARTAN MESILATE [Suspect]
     Indication: HYPERTENSION
     Route: 048
     Dates: start: 20030101
  3. ASPIRIN [Concomitant]
     Dosage: INDICATION: ^ANTIAGGREGANT^
     Route: 048
  4. BENDROFLUAZIDE [Concomitant]
     Indication: HYPERTENSION
     Route: 048
  5. LERCANIDIPINE HCL [Concomitant]
     Indication: HYPERTENSION
     Route: 048

REACTIONS (1)
  - PULMONARY FIBROSIS [None]
